FAERS Safety Report 21159155 (Version 3)
Quarter: 2022Q3

REPORT INFORMATION
  Report Type: Spontaneous
  Country: US (occurrence: US)
  Receive Date: 20220802
  Receipt Date: 20220829
  Transmission Date: 20221027
  Serious: No
  Sender: FDA-Public Use
  Company Number: US-NOVARTISTESTPH-NVSC2022US173475

PATIENT
  Sex: Male

DRUGS (3)
  1. TAFINLAR [Suspect]
     Active Substance: DABRAFENIB MESYLATE
     Indication: Erdheim-Chester disease
     Dosage: 150 MG, Q12H
     Route: 048
     Dates: start: 20220806
  2. MEKINIST [Suspect]
     Active Substance: TRAMETINIB DIMETHYL SULFOXIDE
     Indication: Encephalomyelitis
     Dosage: 1.5 MG, QD
     Route: 048
     Dates: start: 202205
  3. COTELLIC [Concomitant]
     Active Substance: COBIMETINIB
     Indication: Product used for unknown indication
     Dosage: 20 MG, QD (21 DAYS ON AND 7 DAYS OFF OF OF 28 DAYS CYCLE)
     Route: 048

REACTIONS (5)
  - Eye swelling [Unknown]
  - Ocular discomfort [Unknown]
  - Skin exfoliation [Unknown]
  - Rash [Unknown]
  - Product use in unapproved indication [Unknown]
